FAERS Safety Report 12108810 (Version 1)
Quarter: 2016Q1

REPORT INFORMATION
  Report Type: Spontaneous
  Country: GB (occurrence: GB)
  Receive Date: 20160224
  Receipt Date: 20160224
  Transmission Date: 20160526
  Serious: Yes (Other)
  Sender: FDA-Public Use
  Company Number: GB-AUROBINDO-AUR-APL-2016-01777

PATIENT
  Age: 24 Year
  Sex: Male
  Weight: 82.55 kg

DRUGS (2)
  1. OMEPRAZOLE 40MG [Suspect]
     Active Substance: OMEPRAZOLE
     Indication: GASTRITIS
     Dosage: 40 MG, ONCE A DAY
     Route: 048
     Dates: start: 20151001, end: 20151101
  2. SERETIDE [Concomitant]
     Active Substance: FLUTICASONE FUROATE\SALMETEROL XINAFOATE
     Indication: PRODUCT USED FOR UNKNOWN INDICATION
     Route: 065

REACTIONS (5)
  - Decreased appetite [Recovered/Resolved with Sequelae]
  - Drug withdrawal syndrome [Unknown]
  - Abnormal loss of weight [Recovered/Resolved with Sequelae]
  - Dyspepsia [Recovered/Resolved with Sequelae]
  - Faecal calprotectin increased [Unknown]

NARRATIVE: CASE EVENT DATE: 20151101
